FAERS Safety Report 16146526 (Version 3)
Quarter: 2019Q2

REPORT INFORMATION
  Report Type: Report from Study
  Country: US (occurrence: US)
  Receive Date: 20190402
  Receipt Date: 20190510
  Transmission Date: 20190711
  Serious: No
  Sender: FDA-Public Use
  Company Number: US-BRISTOL-MYERS SQUIBB COMPANY-BMS-2019-032498

PATIENT
  Sex: Female

DRUGS (1)
  1. ABATACEPT [Suspect]
     Active Substance: ABATACEPT
     Indication: RHEUMATOID ARTHRITIS
     Dosage: 125 MILLIGRAM, QWK
     Route: 058
     Dates: start: 2018

REACTIONS (8)
  - Injection site reaction [Unknown]
  - Burning sensation [Unknown]
  - Bronchitis [Unknown]
  - Pain [Unknown]
  - Cough [Unknown]
  - Device issue [Unknown]
  - Liquid product physical issue [Unknown]
  - Pain in extremity [Unknown]
